FAERS Safety Report 13795860 (Version 1)
Quarter: 2017Q3

REPORT INFORMATION
  Report Type: Spontaneous
  Country: US (occurrence: US)
  Receive Date: 20170726
  Receipt Date: 20170726
  Transmission Date: 20171127
  Serious: Yes (Other)
  Sender: FDA-Public Use
  Company Number: US-INGENUS PHARMACEUTICALS NJ, LLC-ING201707-000345

PATIENT
  Age: 56 Year
  Sex: Male

DRUGS (2)
  1. INDOCIN [Suspect]
     Active Substance: INDOMETHACIN
  2. PROBENECID AND COLCHICINE [Suspect]
     Active Substance: COLCHICINE\PROBENECID

REACTIONS (2)
  - Endocarditis [Recovered/Resolved]
  - Cardiac tamponade [Recovered/Resolved]
